FAERS Safety Report 22285837 (Version 1)
Quarter: 2023Q2

REPORT INFORMATION
  Report Type: Spontaneous
  Country: FR (occurrence: FR)
  Receive Date: 20230504
  Receipt Date: 20230504
  Transmission Date: 20230722
  Serious: Yes (Other)
  Sender: FDA-Public Use
  Company Number: None

PATIENT
  Age: 40 Year
  Sex: Female
  Weight: 65 kg

DRUGS (2)
  1. XARELTO [Suspect]
     Active Substance: RIVAROXABAN
     Indication: Deep vein thrombosis
     Route: 048
     Dates: start: 20220327, end: 20220426
  2. LEVOFLOXACIN [Suspect]
     Active Substance: LEVOFLOXACIN
     Indication: Deep vein thrombosis
     Route: 058
     Dates: start: 202204, end: 202204

REACTIONS (1)
  - Abortion spontaneous [Recovered/Resolved with Sequelae]

NARRATIVE: CASE EVENT DATE: 20220501
